FAERS Safety Report 7826820 (Version 3)
Quarter: 2013Q2

REPORT INFORMATION
  Report Type: Spontaneous
  Country: US (occurrence: None)
  Receive Date: 20101130
  Receipt Date: 20121203
  Transmission Date: 20140414
  Serious: Yes (Hospitalization, Other)
  Sender: FDA-Public Use
  Company Number: 2010SP006041

PATIENT
  Age: 41 Year
  Sex: Female
  Weight: 58.06 kg

DRUGS (2)
  1. NUVARING [Suspect]
     Indication: MENOPAUSAL SYMPTOMS
     Dosage: ;VAG
     Route: 067
     Dates: start: 200807, end: 200809
  2. TYLENOL [Concomitant]

REACTIONS (8)
  - PULMONARY EMBOLISM [None]
  - DEEP VEIN THROMBOSIS [None]
  - MALLORY-WEISS SYNDROME [None]
  - HEPATIC MASS [None]
  - EMOTIONAL DISORDER [None]
  - DEPRESSION [None]
  - Pneumonitis [None]
  - Off label use [None]
